FAERS Safety Report 23269706 (Version 1)
Quarter: 2023Q4

REPORT INFORMATION
  Report Type: Spontaneous
  Country: CN (occurrence: CN)
  Receive Date: 20231207
  Receipt Date: 20231207
  Transmission Date: 20240110
  Serious: Yes (Other)
  Sender: FDA-Public Use
  Company Number: CN-ABBVIE-5522398

PATIENT
  Age: 21 Year
  Sex: Male
  Weight: 50 kg

DRUGS (5)
  1. VENETOCLAX [Suspect]
     Active Substance: VENETOCLAX
     Indication: B-cell type acute leukaemia
     Dosage: 200 MILLIGRAM
     Route: 048
     Dates: start: 20231030, end: 20231105
  2. CYTARABINE [Concomitant]
     Active Substance: CYTARABINE
     Indication: B-cell type acute leukaemia
     Dosage: 0.015 GRAM?DURATION TEXT: DAY 1-5
     Route: 065
     Dates: start: 20231030, end: 20231110
  3. CYTARABINE [Concomitant]
     Active Substance: CYTARABINE
     Indication: B-cell type acute leukaemia
     Dosage: DAY 8-12
     Route: 065
     Dates: start: 202311
  4. IDARUBICIN HYDROCHLORIDE [Concomitant]
     Active Substance: IDARUBICIN HYDROCHLORIDE
     Indication: B-cell type acute leukaemia
     Dosage: 10 MILLIGRAM,?DURATION TEXT: D1
     Route: 065
     Dates: start: 20231030, end: 20231030
  5. IDARUBICIN HYDROCHLORIDE [Concomitant]
     Active Substance: IDARUBICIN HYDROCHLORIDE
     Indication: B-cell type acute leukaemia
     Dosage: DURATION TEXT: D8
     Dates: start: 20231108, end: 20231108

REACTIONS (1)
  - Myelosuppression [Recovering/Resolving]

NARRATIVE: CASE EVENT DATE: 20231108
